FAERS Safety Report 9795924 (Version 1)
Quarter: 2014Q1

REPORT INFORMATION
  Report Type: Report from Study
  Country: DE (occurrence: DE)
  Receive Date: 20140103
  Receipt Date: 20140103
  Transmission Date: 20141002
  Serious: Yes (Hospitalization)
  Sender: FDA-Public Use
  Company Number: DE-CELGENEUS-062-21660-13124225

PATIENT
  Age: 42 Year
  Sex: Female
  Weight: 51 kg

DRUGS (3)
  1. ABRAXANE [Suspect]
     Indication: BREAST CANCER
     Dosage: 508 MILLIGRAM
     Route: 041
     Dates: start: 20130421, end: 20130618
  2. CYCLOPHOSPHAMIDE [Suspect]
     Indication: BREAST CANCER
     Dosage: 3020 MILLIGRAM
     Route: 041
     Dates: start: 20130702
  3. EPIRUBICIN [Suspect]
     Indication: BREAST CANCER
     Dosage: 231 MILLIGRAM
     Route: 041
     Dates: start: 20130409

REACTIONS (1)
  - Leukocytosis [Recovered/Resolved]
